FAERS Safety Report 25805242 (Version 1)
Quarter: 2025Q3

REPORT INFORMATION
  Report Type: Spontaneous
  Country: US (occurrence: US)
  Receive Date: 20250916
  Receipt Date: 20250916
  Transmission Date: 20251021
  Serious: No
  Sender: ROCHE
  Company Number: US-ROCHE-10000383690

PATIENT
  Sex: Female

DRUGS (17)
  1. XOLAIR [Suspect]
     Active Substance: OMALIZUMAB
     Indication: Asthma
     Route: 058
  2. XOLAIR [Suspect]
     Active Substance: OMALIZUMAB
  3. SPIRIVA [Concomitant]
     Active Substance: TIOTROPIUM BROMIDE MONOHYDRATE
  4. SINGULAIR [Concomitant]
     Active Substance: MONTELUKAST SODIUM
  5. PROLIA [Concomitant]
     Active Substance: DENOSUMAB
  6. PREDNISONE [Concomitant]
     Active Substance: PREDNISONE
  7. OMEPRAZOLE [Concomitant]
     Active Substance: OMEPRAZOLE
  8. NAPROXEN [Concomitant]
     Active Substance: NAPROXEN
  9. LEVOCETIRIZINE [Concomitant]
     Active Substance: LEVOCETIRIZINE
  10. IRBESARTAN [Concomitant]
     Active Substance: IRBESARTAN
  11. ESCITALOPRAM [Concomitant]
     Active Substance: ESCITALOPRAM OXALATE
  12. EPINEPHRINE [Concomitant]
     Active Substance: EPINEPHRINE
  13. CLONAZEPAM [Concomitant]
     Active Substance: CLONAZEPAM
  14. ZINC [Concomitant]
     Active Substance: ZINC
  15. VITAMIN D3 [Concomitant]
     Active Substance: CHOLECALCIFEROL
  16. VITAMIN B6 [Concomitant]
     Active Substance: PYRIDOXINE HYDROCHLORIDE
  17. LECITHIN [Concomitant]
     Active Substance: LECITHIN

REACTIONS (2)
  - Drug ineffective [Unknown]
  - No adverse event [Unknown]
